FAERS Safety Report 14727712 (Version 9)
Quarter: 2020Q1

REPORT INFORMATION
  Report Type: Report from Study
  Country: CA (occurrence: CA)
  Receive Date: 20180406
  Receipt Date: 20200123
  Transmission Date: 20200409
  Serious: Yes (Other)
  Sender: FDA-Public Use
  Company Number: CA-BRISTOL-MYERS SQUIBB COMPANY-BMS-2018-029302

PATIENT
  Age: 73 Year
  Sex: Female

DRUGS (1)
  1. ABATACEPT [Suspect]
     Active Substance: ABATACEPT
     Indication: RHEUMATOID ARTHRITIS
     Dosage: 1000 MILLIGRAM, Q4WK
     Route: 042
     Dates: start: 20140218, end: 20191108

REACTIONS (16)
  - Contusion [Unknown]
  - Pneumonia [Recovered/Resolved]
  - Foot fracture [Recovering/Resolving]
  - Memory impairment [Recovering/Resolving]
  - Nausea [Unknown]
  - Vomiting [Unknown]
  - Knee operation [Unknown]
  - Back pain [Recovering/Resolving]
  - Intervertebral disc protrusion [Unknown]
  - Bronchitis [Unknown]
  - Musculoskeletal pain [Unknown]
  - Influenza [Recovering/Resolving]
  - Joint swelling [Unknown]
  - Rheumatoid arthritis [Recovering/Resolving]
  - Diarrhoea [Unknown]
  - Fall [Unknown]

NARRATIVE: CASE EVENT DATE: 20191202
